FAERS Safety Report 13672399 (Version 1)
Quarter: 2017Q2

REPORT INFORMATION
  Report Type: Spontaneous
  Country: ES (occurrence: ES)
  Receive Date: 20170621
  Receipt Date: 20170621
  Transmission Date: 20170830
  Serious: Yes (Other)
  Sender: FDA-Public Use
  Company Number: ES-009507513-1706ESP006965

PATIENT
  Age: 28 Year
  Sex: Female
  Weight: 53 kg

DRUGS (1)
  1. NUVARING [Suspect]
     Active Substance: ETHINYL ESTRADIOL\ETONOGESTREL
     Indication: CONTRACEPTION
     Dosage: 1 DF, Q3W, (0,120 MG/0,015 MG EVERY 24 HOURS, VAGINAL DELIVERY SYSTEM)
     Route: 067
     Dates: start: 20161225

REACTIONS (2)
  - Libido decreased [Unknown]
  - Fatigue [Unknown]

NARRATIVE: CASE EVENT DATE: 2017
